FAERS Safety Report 6903491 (Version 10)
Quarter: 2015Q3

REPORT INFORMATION
  Report Type: Report from Study
  Country: JP (occurrence: JP)
  Receive Date: 20090206
  Receipt Date: 20150702
  Transmission Date: 20151125
  Serious: Yes (Death, Hospitalization)
  Sender: FDA-Public Use
  Company Number: PHHO2008JP15298

PATIENT
  Age: 71 Year
  Sex: Male
  Weight: 64 kg

DRUGS (19)
  1. LOXONIN [Concomitant]
     Active Substance: LOXOPROFEN SODIUM
     Indication: PAIN PROPHYLAXIS
     Dosage: UNK
  2. ICL670A [Suspect]
     Active Substance: DEFERASIROX
     Route: 048
     Dates: start: 20080503, end: 20080918
  3. AMARYL [Concomitant]
     Active Substance: GLIMEPIRIDE
     Indication: DIABETES MELLITUS
  4. GASMOTIN [Concomitant]
     Active Substance: MOSAPRIDE CITRATE
     Indication: GASTROENTERITIS
  5. ICL670A [Suspect]
     Active Substance: DEFERASIROX
     Route: 048
     Dates: start: 20081128, end: 20081223
  6. ICL670A [Suspect]
     Active Substance: DEFERASIROX
     Route: 048
     Dates: start: 20081228, end: 20090120
  7. PRIMOBOLAN-DEPOT [Concomitant]
     Active Substance: METHENOLONE ENANTHATE
     Indication: APLASTIC ANAEMIA
  8. FAROM [Concomitant]
     Active Substance: FAROPENEM SODIUM
  9. OMEPRAL [Concomitant]
     Active Substance: OMEPRAZOLE
  10. NEORAL [Suspect]
     Active Substance: CYCLOSPORINE
     Indication: APLASTIC ANAEMIA
     Dosage: UNKNOWN
     Route: 048
     Dates: start: 20071219, end: 20081208
  11. ICL670A [Suspect]
     Active Substance: DEFERASIROX
     Indication: HAEMOSIDEROSIS
     Dosage: 1375 MG DAILY
     Route: 048
     Dates: start: 20080503, end: 20080918
  12. ICL670A [Suspect]
     Active Substance: DEFERASIROX
     Indication: IRON OVERLOAD
     Dosage: 1000 MG DAILY
     Route: 048
     Dates: start: 20080919, end: 20081127
  13. ICL670A [Suspect]
     Active Substance: DEFERASIROX
     Indication: CONSTIPATION
     Dosage: 625 MG DAILY
     Route: 048
     Dates: start: 20081128, end: 20081223
  14. ICL670A [Suspect]
     Active Substance: DEFERASIROX
     Route: 048
     Dates: start: 20080919, end: 20081127
  15. PREDONINE [Concomitant]
     Active Substance: PREDNISOLONE\PREDNISOLONE ACETATE\PREDNISOLONE SODIUM SUCCINATE
     Indication: APLASTIC ANAEMIA
     Dosage: UNK
  16. BASEN [Concomitant]
     Active Substance: VOGLIBOSE
     Indication: DIABETES MELLITUS
  17. IODINE [Concomitant]
     Active Substance: IODINE
     Indication: INFECTION PROPHYLAXIS
  18. SELBEX [Concomitant]
     Active Substance: TEPRENONE
     Indication: GASTROENTERITIS
  19. ICL670A [Suspect]
     Active Substance: DEFERASIROX
     Dosage: 625 MG, QD
     Route: 048
     Dates: start: 20081228, end: 20090120

REACTIONS (30)
  - Altered state of consciousness [Recovering/Resolving]
  - VIIth nerve paralysis [Recovering/Resolving]
  - Pulmonary alveolar haemorrhage [Fatal]
  - Blood pressure decreased [Fatal]
  - Loss of consciousness [Not Recovered/Not Resolved]
  - Hypoglycaemia [Unknown]
  - Fall [Unknown]
  - Hemiplegia [Not Recovered/Not Resolved]
  - Obstructive airways disorder [Fatal]
  - Muscular weakness [Recovering/Resolving]
  - Epistaxis [Fatal]
  - Respiratory distress [Fatal]
  - Pneumonia [Recovered/Resolved]
  - Decreased appetite [Recovered/Resolved]
  - Dehydration [Not Recovered/Not Resolved]
  - Pyrexia [Unknown]
  - Platelet count decreased [Recovering/Resolving]
  - Drug level increased [Unknown]
  - Walking disability [Recovering/Resolving]
  - Respiratory tract haemorrhage [Fatal]
  - Arrhythmia [Fatal]
  - Renal impairment [Recovering/Resolving]
  - Cerebral infarction [Recovering/Resolving]
  - Unresponsive to stimuli [Recovering/Resolving]
  - Meningitis [Fatal]
  - Abdominal discomfort [Recovered/Resolved]
  - Depressed level of consciousness [Recovering/Resolving]
  - Sepsis [Fatal]
  - Disseminated intravascular coagulation [Fatal]
  - Pneumonia [Recovered/Resolved]

NARRATIVE: CASE EVENT DATE: 20081128
